FAERS Safety Report 25199808 (Version 1)
Quarter: 2025Q2

REPORT INFORMATION
  Report Type: Spontaneous
  Country: RS (occurrence: RS)
  Receive Date: 20250415
  Receipt Date: 20250415
  Transmission Date: 20250717
  Serious: Yes (Other)
  Sender: AMGEN
  Company Number: RS-AMGEN-SRBSP2025071610

PATIENT
  Age: 77 Year
  Sex: Male

DRUGS (4)
  1. VECTIBIX [Suspect]
     Active Substance: PANITUMUMAB
     Indication: Adenocarcinoma of colon
     Route: 065
  2. FLUOROURACIL [Suspect]
     Active Substance: FLUOROURACIL
     Indication: Adenocarcinoma of colon
     Route: 065
  3. OXALIPLATIN [Suspect]
     Active Substance: OXALIPLATIN
     Indication: Adenocarcinoma of colon
     Route: 065
  4. LEUCOVORIN [Suspect]
     Active Substance: LEUCOVORIN\LEUCOVORIN CALCIUM
     Indication: Adenocarcinoma of colon
     Route: 065

REACTIONS (10)
  - Neurotoxicity [Unknown]
  - Acute coronary syndrome [Unknown]
  - Cardiac failure acute [Recovered/Resolved]
  - Pulmonary oedema [Unknown]
  - Therapy partial responder [Unknown]
  - Dermatitis acneiform [Unknown]
  - Abdominal pain upper [Unknown]
  - Chest pain [Unknown]
  - Nausea [Unknown]
  - Off label use [Unknown]
